FAERS Safety Report 6399090-9 (Version None)
Quarter: 2009Q4

REPORT INFORMATION
  Report Type: 
  Country: None (occurrence: None)
  Receive Date: 20091008
  Receipt Date: 20091002
  Transmission Date: 20100525
  Serious: Yes (Death)
  Sender: FDA-Public Use
  Company Number: 2009010936

PATIENT
  Sex: Male

DRUGS (2)
  1. TREANDA [Suspect]
     Indication: MANTLE CELL LYMPHOMA
     Dosage: 4 CYCLES, INTRAVENOUS
     Route: 042
     Dates: end: 20090701
  2. RITUXAN [Suspect]
     Indication: MANTLE CELL LYMPHOMA
     Dosage: 4 CYCLES
     Dates: end: 20090701

REACTIONS (3)
  - INFUSION SITE IRRITATION [None]
  - MALIGNANT NEOPLASM PROGRESSION [None]
  - MANTLE CELL LYMPHOMA [None]
